FAERS Safety Report 24023105 (Version 2)
Quarter: 2024Q3

REPORT INFORMATION
  Report Type: Report from Study
  Country: US (occurrence: US)
  Receive Date: 20240627
  Receipt Date: 20240710
  Transmission Date: 20241017
  Serious: No
  Sender: ROCHE
  Company Number: US-ROCHE-3409254

PATIENT
  Age: 31 Year
  Sex: Male

DRUGS (4)
  1. ALECENSA [Suspect]
     Active Substance: ALECTINIB HYDROCHLORIDE
     Indication: Histiocytosis
     Dosage: SIZE 150MG, TAKE 2 CAPSULES EVERY 12 HOURS
     Route: 048
  2. IMODIUM [Concomitant]
     Active Substance: LOPERAMIDE HYDROCHLORIDE
  3. MEDROL [Concomitant]
     Active Substance: METHYLPREDNISOLONE
  4. ALECTINIB [Concomitant]
     Active Substance: ALECTINIB

REACTIONS (2)
  - Off label use [Unknown]
  - No adverse event [Unknown]
